FAERS Safety Report 16257664 (Version 1)
Quarter: 2019Q2

REPORT INFORMATION
  Report Type: Spontaneous
  Country: FR (occurrence: FR)
  Receive Date: 20190430
  Receipt Date: 20190430
  Transmission Date: 20190711
  Serious: Yes (Other)
  Sender: FDA-Public Use
  Company Number: FR-TEVA-2019-FR-1044811

PATIENT
  Age: 21 Year
  Sex: Female

DRUGS (10)
  1. TERCIAN [Suspect]
     Active Substance: CYAMEMAZINE
     Indication: MANIA
     Dosage: VARIABLE
     Route: 048
     Dates: start: 20190207, end: 20190305
  2. LOXAPAC [Concomitant]
     Active Substance: LOXAPINE
     Indication: MANIA
     Dosage: UNKNOWN
     Route: 048
     Dates: start: 20190205, end: 20190207
  3. THERALENE [Suspect]
     Active Substance: TRIMEPRAZINE
     Indication: MANIA
     Dosage: 30 MILLIGRAM DAILY;
     Route: 048
     Dates: start: 20190209, end: 20190217
  4. ADEPAL, COMPRIM? ENROB? [Suspect]
     Active Substance: ETHINYL ESTRADIOL\LEVONORGESTREL
     Indication: CONTRACEPTION
     Dosage: 1 DOSAGE FORMS DAILY;
     Route: 048
     Dates: start: 20190213, end: 20190222
  5. ARIXTRA [Suspect]
     Active Substance: FONDAPARINUX SODIUM
     Indication: THROMBOSIS PROPHYLAXIS
     Dosage: 1 DOSAGE FORMS DAILY;
     Route: 058
     Dates: start: 20190208, end: 20190226
  6. LORMETAZEPAM [Concomitant]
     Active Substance: LORMETAZEPAM
     Indication: MANIA
     Dosage: 2 DOSAGE FORMS DAILY;
     Route: 048
     Dates: start: 20190208, end: 20190306
  7. TERALITHE [Concomitant]
     Active Substance: LITHIUM CARBONATE
     Indication: BIPOLAR DISORDER
     Dosage: UNKNOWN
     Route: 048
     Dates: start: 20190214, end: 20190313
  8. DIAZEPAM. [Suspect]
     Active Substance: DIAZEPAM
     Indication: MANIA
     Dosage: VARIABLE
     Route: 048
     Dates: start: 20190204, end: 20190305
  9. ARIPIPRAZOLE. [Concomitant]
     Active Substance: ARIPIPRAZOLE
     Indication: MANIA
     Dosage: UNKNOWN
     Route: 048
     Dates: start: 20190205, end: 20190314
  10. LEPTICUR 10 MG, COMPRIM? [Concomitant]
     Active Substance: TROPATEPINE HYDROCHLORIDE
     Indication: PARKINSONISM
     Dosage: 1 DOSAGE FORMS DAILY;
     Route: 048
     Dates: start: 20190205, end: 20190207

REACTIONS (1)
  - Hepatocellular injury [Recovering/Resolving]

NARRATIVE: CASE EVENT DATE: 201902
